FAERS Safety Report 7202402-7 (Version None)
Quarter: 2010Q4

REPORT INFORMATION
  Report Type: 
  Country: None (occurrence: None)
  Receive Date: 20101215
  Receipt Date: 20101126
  Transmission Date: 20110411
  Serious: Yes (Death)
  Sender: FDA-Public Use
  Company Number: THYM-1000998

PATIENT
  Age: 8 Year
  Sex: Female
  Weight: 23 kg

DRUGS (8)
  1. THYMOGLOBULIN [Suspect]
     Indication: BONE MARROW CONDITIONING REGIMEN
     Dosage: 50 MG, QD, INTRAVENOUS
     Route: 042
     Dates: start: 20090214, end: 20090215
  2. MELPHALAN HYDROCHLORIDE [Concomitant]
  3. DEXAMETHASONE SODIUM PHOSPHATE [Concomitant]
  4. HYDROXYZINE HCL [Concomitant]
  5. PANIPENEM_BETAMIPRON (PANIPENEM_BETAMIPRON) [Concomitant]
  6. TOBRAMYCIN [Concomitant]
  7. ACICLOVIR (ACICLOVIR SODIUM) [Concomitant]
  8. BIAPENEM (BIAPENEM) [Concomitant]

REACTIONS (11)
  - ALANINE AMINOTRANSFERASE INCREASED [None]
  - ASPARTATE AMINOTRANSFERASE INCREASED [None]
  - BLOOD BILIRUBIN INCREASED [None]
  - CARDIAC ARREST [None]
  - EPSTEIN-BARR VIRUS INFECTION [None]
  - GENERAL PHYSICAL HEALTH DETERIORATION [None]
  - LIVER DISORDER [None]
  - MULTI-ORGAN FAILURE [None]
  - OXYGEN SATURATION DECREASED [None]
  - PLEURAL EFFUSION [None]
  - URINE OUTPUT DECREASED [None]
